FAERS Safety Report 22152399 (Version 4)
Quarter: 2023Q4

REPORT INFORMATION
  Report Type: Spontaneous
  Country: US (occurrence: US)
  Receive Date: 20230329
  Receipt Date: 20231113
  Transmission Date: 20240109
  Serious: Yes (Other)
  Sender: FDA-Public Use
  Company Number: US-BRISTOL-MYERS SQUIBB COMPANY-2023-042844

PATIENT
  Age: 67 Year
  Sex: Male
  Weight: 79.83 kg

DRUGS (2)
  1. REVLIMID [Suspect]
     Active Substance: LENALIDOMIDE
     Indication: Plasma cell myeloma
     Dosage: TAKE 1 CAPSULE (10MG TOTAL) BY MOUTH EVERY DAY CONTINUOUSLY ON DAYS 1-28/TAKE 1 CAPSULE BY MOUTH EVE
     Route: 048
     Dates: start: 20230323
  2. REVLIMID [Suspect]
     Active Substance: LENALIDOMIDE
     Dosage: TAKE 1 CAPSULE (10MG TOTAL) BY MOUTH EVERY DAY CONTINUOUSLY ON DAYS 1-28
     Route: 048
     Dates: start: 20230531

REACTIONS (9)
  - Prostate cancer [Recovered/Resolved]
  - Heart rate decreased [Not Recovered/Not Resolved]
  - Arthralgia [Not Recovered/Not Resolved]
  - Intervertebral disc degeneration [Unknown]
  - Arthropathy [Not Recovered/Not Resolved]
  - Weight decreased [Unknown]
  - Feeling abnormal [Unknown]
  - Somnolence [Unknown]
  - Back disorder [Recovered/Resolved]
